FAERS Safety Report 17547204 (Version 2)
Quarter: 2020Q2

REPORT INFORMATION
  Report Type: Spontaneous
  Country: CH (occurrence: CH)
  Receive Date: 20200316
  Receipt Date: 20200415
  Transmission Date: 20200713
  Serious: Yes (Hospitalization, Other)
  Sender: FDA-Public Use
  Company Number: CH-TOPROL ACQUISITION LLC-2020-TOP-000194

PATIENT
  Age: 94 Year
  Sex: Female

DRUGS (45)
  1. FRAGMIN [Suspect]
     Active Substance: DALTEPARIN SODIUM
     Indication: PRODUCT USED FOR UNKNOWN INDICATION
     Dosage: 5000 IU, 1X/DAY 0-0-1-0 FOR AT LEAST 6 WEEKS
  2. KCL-RETARD [Suspect]
     Active Substance: POTASSIUM CHLORIDE
     Indication: PRODUCT USED FOR UNKNOWN INDICATION
     Dosage: 40 MMOL, DAILY (10 MMOL DRAGEES 0-2-2-0)
  3. DIOVAN [Suspect]
     Active Substance: VALSARTAN
     Dosage: UNK (1/5-0-0-0)
  4. XARELTO [Suspect]
     Active Substance: RIVAROXABAN
     Indication: PRODUCT USED FOR UNKNOWN INDICATION
     Dosage: UNK
     Dates: end: 20180820
  5. PARAGOL [Suspect]
     Active Substance: MINERAL OIL\PHENOLPHTHALEIN
     Indication: PRODUCT USED FOR UNKNOWN INDICATION
     Dosage: UNK
  6. OTHER NUTRIENTS [Suspect]
     Active Substance: UNSPECIFIED INGREDIENT
     Indication: PRODUCT USED FOR UNKNOWN INDICATION
     Dosage: UNK UNK, 1X/DAY (1-0-0-0)
     Dates: start: 20180827, end: 20181010
  7. TORASEMIDE [Suspect]
     Active Substance: TORSEMIDE
     Indication: PRODUCT USED FOR UNKNOWN INDICATION
     Dosage: BETWEEN 1/5 OR 1 OR 1.5 TABLETS EACH MORNING
  8. METOPROLOL SUCCINATE. [Suspect]
     Active Substance: METOPROLOL SUCCINATE
     Dosage: 12.5 MG UNK
     Route: 048
  9. SYMBICORT [Suspect]
     Active Substance: BUDESONIDE\FORMOTEROL FUMARATE DIHYDRATE
     Indication: PRODUCT USED FOR UNKNOWN INDICATION
     Dosage: UNK, PRN
     Route: 055
  10. NEXIUM CONTROL [Suspect]
     Active Substance: ESOMEPRAZOLE MAGNESIUM
     Indication: PRODUCT USED FOR UNKNOWN INDICATION
     Dosage: UNK, 1 IN THE MORNING
     Dates: end: 20180703
  11. LAXOBERON [Suspect]
     Active Substance: SODIUM PICOSULFATE
     Indication: PRODUCT USED FOR UNKNOWN INDICATION
     Dosage: UNK
  12. LIXIANA [Suspect]
     Active Substance: EDOXABAN TOSYLATE
     Indication: PRODUCT USED FOR UNKNOWN INDICATION
     Dosage: UNK UNK, 1X/DAY (0-0-1-0)
  13. PIPERACILLIN AND TAZOBACTAM [Suspect]
     Active Substance: PIPERACILLIN SODIUM\TAZOBACTAM SODIUM
     Indication: PRODUCT USED FOR UNKNOWN INDICATION
     Dosage: 4.5 G, 3X/DAY (EVERY 8 HOURS)
     Route: 042
     Dates: end: 20180719
  14. METOLAZONE. [Suspect]
     Active Substance: METOLAZONE
     Indication: PRODUCT USED FOR UNKNOWN INDICATION
     Dosage: 2.5 MG, 1X/DAY 1/2-0-0-0
     Route: 048
     Dates: end: 20180710
  15. FRESUBIN                           /07459901/ [Suspect]
     Active Substance: CARBOHYDRATES\FATTY ACIDS\MINERALS\PROTEIN\VITAMINS
     Indication: PRODUCT USED FOR UNKNOWN INDICATION
     Dosage: 125 G CREAM 1 AT 15:00/21:00 CHOCOLATE
     Dates: end: 20180703
  16. VALSARTAN. [Suspect]
     Active Substance: VALSARTAN
     Indication: PRODUCT USED FOR UNKNOWN INDICATION
     Dosage: UNK (1/2 IN THE MORNING AND 1/2 IN THE EVENING
     Dates: end: 20180703
  17. DIGOXIN. [Suspect]
     Active Substance: DIGOXIN
     Indication: PRODUCT USED FOR UNKNOWN INDICATION
     Dosage: UNK (1 AT NOON, SUNDAY BREAK)
     Dates: end: 20180703
  18. ESIDREX [Suspect]
     Active Substance: HYDROCHLOROTHIAZIDE
     Indication: PRODUCT USED FOR UNKNOWN INDICATION
     Dosage: UNK
  19. MAGNESIOCARD [Suspect]
     Active Substance: MAGNESIUM ASPARTATE HYDROCHLORIDE
     Indication: PRODUCT USED FOR UNKNOWN INDICATION
     Dosage: UNK UNK, 1X/DAY (0-0-1-0)
  20. DIOVAN [Suspect]
     Active Substance: VALSARTAN
     Indication: PRODUCT USED FOR UNKNOWN INDICATION
     Dosage: 80 MG, DAILY 1/2-0-1/2-0
     Dates: end: 20180703
  21. DAFALGAN [Suspect]
     Active Substance: ACETAMINOPHEN
     Indication: PRODUCT USED FOR UNKNOWN INDICATION
     Dosage: 1 G QID
     Dates: end: 20180703
  22. FLECTOR EP [Suspect]
     Active Substance: DICLOFENAC EPOLAMINE
     Indication: PRODUCT USED FOR UNKNOWN INDICATION
     Dosage: UNK
     Dates: start: 20180816, end: 20180824
  23. NO MATCH [Suspect]
     Active Substance: UNSPECIFIED INGREDIENT
     Indication: PRODUCT USED FOR UNKNOWN INDICATION
     Dosage: UNK, PRN
  24. DAFALGAN [Suspect]
     Active Substance: ACETAMINOPHEN
     Dosage: 500 MG, PRN
  25. VALSARTAN. [Suspect]
     Active Substance: VALSARTAN
     Dosage: UNK (1/5-0-1/5-0), TWO TIMES A DAY
     Dates: start: 20181010
  26. CALPEROS                           /00944201/ [Suspect]
     Active Substance: CALCIUM CARBONATE\CHOLECALCIFEROL
     Indication: PRODUCT USED FOR UNKNOWN INDICATION
     Dosage: UNK (1 IN THE MORNING)
     Dates: end: 20180703
  27. NITROGLYCERIN. [Suspect]
     Active Substance: NITROGLYCERIN
     Indication: PRODUCT USED FOR UNKNOWN INDICATION
     Dosage: UNK, PRN
  28. CORVATON [Suspect]
     Active Substance: MOLSIDOMINE
     Indication: PRODUCT USED FOR UNKNOWN INDICATION
     Dosage: UNK (1/5-0-1-0)
  29. MARCUMAR [Suspect]
     Active Substance: PHENPROCOUMON
     Indication: PRODUCT USED FOR UNKNOWN INDICATION
     Dosage: UNK (MOSTLY 1/4 IN THE MORNING)
     Dates: end: 20180701
  30. ELIQUIS [Suspect]
     Active Substance: APIXABAN
     Indication: PRODUCT USED FOR UNKNOWN INDICATION
     Dosage: UNK UNK, 2X/DAY (1-0-1-0)
     Dates: start: 20180905, end: 20181010
  31. AUGMENTIN [Suspect]
     Active Substance: AMOXICILLIN\CLAVULANATE POTASSIUM
     Indication: PNEUMONIA
     Dosage: UNK
     Dates: start: 20180725, end: 20180730
  32. METOPROLOL SUCCINATE. [Suspect]
     Active Substance: METOPROLOL SUCCINATE
     Indication: PRODUCT USED FOR UNKNOWN INDICATION
     Dosage: UNK, 2X/DAY (1-0-0-1)
     Route: 048
  33. ALDACTONE [Suspect]
     Active Substance: SPIRONOLACTONE
     Indication: PRODUCT USED FOR UNKNOWN INDICATION
     Dosage: 12.5 MG, 1X/DAY 1/2-0-0-0
     Dates: end: 20180807
  34. ALDACTONE [Suspect]
     Active Substance: SPIRONOLACTONE
     Dosage: UNK
     Dates: start: 20180806, end: 20180910
  35. XELJANZ [Suspect]
     Active Substance: TOFACITINIB CITRATE
     Indication: PRODUCT USED FOR UNKNOWN INDICATION
     Dosage: 5 MG, 2X/DAY 1-0-1-0
     Dates: end: 201807
  36. CALCIMAGON D3 [Suspect]
     Active Substance: CALCIUM\CHOLECALCIFEROL
     Indication: PRODUCT USED FOR UNKNOWN INDICATION
     Dosage: 1 DF, 1X/DAY 500/800 TABLETS 1-0-0-0
  37. PREDNISONE. [Suspect]
     Active Substance: PREDNISONE
     Indication: PRODUCT USED FOR UNKNOWN INDICATION
     Dosage: UNK
     Dates: start: 20180724, end: 20180805
  38. PROLIA [Suspect]
     Active Substance: DENOSUMAB
     Indication: PRODUCT USED FOR UNKNOWN INDICATION
     Dosage: 60 MG/ML, UNK
     Dates: end: 201811
  39. METOPROLOL SUCCINATE. [Suspect]
     Active Substance: METOPROLOL SUCCINATE
     Indication: PRODUCT USED FOR UNKNOWN INDICATION
     Dosage: 25 MG, 2X/DAY 1-0-0-1
     Route: 048
  40. ALDACTONE [Suspect]
     Active Substance: SPIRONOLACTONE
     Dosage: UNK (0-0-1/5-0)
  41. PANTOZOL [Suspect]
     Active Substance: PANTOPRAZOLE SODIUM
     Indication: PRODUCT USED FOR UNKNOWN INDICATION
     Dosage: 40 MG, 1X/DAY 1-0-0-0
  42. SIMVASTATIN. [Suspect]
     Active Substance: SIMVASTATIN
     Indication: PRODUCT USED FOR UNKNOWN INDICATION
     Dosage: 40 MG, 1X/DAY0-0-1-0
     Dates: end: 20180703
  43. GUTRON [Suspect]
     Active Substance: MIDODRINE
     Indication: PRODUCT USED FOR UNKNOWN INDICATION
     Dosage: UNK UNK, 3X/DAY (1-1-1-0)
  44. XARELTO [Suspect]
     Active Substance: RIVAROXABAN
     Dosage: 20 MG QD
     Dates: start: 20180820
  45. MAGNESIOCARD [Suspect]
     Active Substance: MAGNESIUM ASPARTATE HYDROCHLORIDE
     Dosage: UNK, 1X/DAY (0-0-2-0)

REACTIONS (23)
  - Dementia [Unknown]
  - Hallucination [Unknown]
  - Diarrhoea [Unknown]
  - Dry mouth [Recovered/Resolved]
  - Amnesia [Unknown]
  - Joint swelling [Unknown]
  - Weight decreased [Unknown]
  - Depression [Unknown]
  - Dehydration [Recovered/Resolved]
  - Thirst [Recovered/Resolved]
  - Elephantiasis [Unknown]
  - Visual impairment [Recovered/Resolved]
  - Nightmare [Recovered/Resolved]
  - Alopecia [Unknown]
  - Dyspnoea [Unknown]
  - Muscular weakness [Recovered/Resolved]
  - Pain in extremity [Unknown]
  - Pyrexia [Unknown]
  - Overdose [Recovered/Resolved]
  - Delirium [Recovered/Resolved]
  - Fatigue [Unknown]
  - Hyperhidrosis [Recovered/Resolved]
  - Fluid retention [Unknown]

NARRATIVE: CASE EVENT DATE: 20181010
